FAERS Safety Report 8505262-7 (Version None)
Quarter: 2012Q3

REPORT INFORMATION
  Report Type: 
  Country: None (occurrence: None)
  Receive Date: 20120712
  Receipt Date: 20120709
  Transmission Date: 20120928
  Serious: No
  Sender: FDA-Public Use
  Company Number: US-TEVA-347491USA

PATIENT
  Sex: Female
  Weight: 65.83 kg

DRUGS (6)
  1. TOPAMAX [Concomitant]
     Indication: HEADACHE
     Dosage: 10 MILLIGRAM;
     Route: 048
  2. RANITIDINE [Concomitant]
     Indication: DYSPEPSIA
     Dosage: 300 MILLIGRAM;
     Route: 048
  3. SEROQUEL [Interacting]
     Route: 048
  4. COPAXONE [Suspect]
     Indication: MULTIPLE SCLEROSIS
     Dosage: 20 MILLIGRAM;
     Route: 058
     Dates: start: 20110101
  5. TRAZODONE HYDROCHLORIDE [Concomitant]
     Dosage: 150 MILLIMOL;
     Route: 048
  6. TRAMADOL HCL [Concomitant]

REACTIONS (2)
  - INJECTION SITE WARMTH [None]
  - INJECTION SITE SWELLING [None]
